FAERS Safety Report 8844795 (Version 1)
Quarter: 2012Q4

REPORT INFORMATION
  Report Type: 
  Country: US (occurrence: US)
  Receive Date: 20121017
  Receipt Date: 20121017
  Transmission Date: 20130627
  Serious: No
  Sender: FDA-Public Use
  Company Number: US-BAYER-2012-102170

PATIENT

DRUGS (2)
  1. ALEVE CAPLET/TABLET,MIDOL EXTENDED RELIEF CAPLET [Suspect]
     Indication: NECK PAIN
     Dosage: UNK
  2. LISINOPRIL [Concomitant]
     Dosage: 40 mg, a day

REACTIONS (1)
  - Blood pressure increased [None]
